FAERS Safety Report 24001341 (Version 1)
Quarter: 2024Q2

REPORT INFORMATION
  Report Type: Spontaneous
  Country: CH (occurrence: CH)
  Receive Date: 20240621
  Receipt Date: 20240621
  Transmission Date: 20240716
  Serious: Yes (Hospitalization, Other)
  Sender: FDA-Public Use
  Company Number: None

PATIENT
  Age: 58 Year
  Sex: Female
  Weight: 52.8 kg

DRUGS (10)
  1. AMOXICILLIN\CLAVULANATE POTASSIUM [Suspect]
     Active Substance: AMOXICILLIN\CLAVULANATE POTASSIUM
     Indication: Antibiotic prophylaxis
     Dosage: CO AMOXI MEPHA
     Route: 048
     Dates: start: 20240521, end: 20240526
  2. Novalgin [Concomitant]
     Indication: Pain
     Dosage: EXACT DOSAGE UNKNOWN
     Route: 048
     Dates: start: 20240523
  3. PEMBROLIZUMAB [Concomitant]
     Active Substance: PEMBROLIZUMAB
     Indication: Triple negative breast cancer
     Dosage: TIME INTERVAL: CYCLICAL: 8 CYCLES SO FAR, LAST APPLICATION 20240426, CONTINUATION PLANNED ; CYCLICAL
     Route: 041
     Dates: start: 202311
  4. Vitamin a blache [Concomitant]
     Indication: Product used for unknown indication
     Route: 047
  5. CYCLOPHOSPHAMIDE [Concomitant]
     Active Substance: CYCLOPHOSPHAMIDE
     Indication: Triple negative breast cancer
     Dosage: TIME INTERVAL: CYCLICAL: CYCLICAL
     Route: 041
     Dates: start: 20240220, end: 20240426
  6. DAFALGAN [Concomitant]
     Active Substance: ACETAMINOPHEN
     Indication: Pain
     Dosage: EXACT DOSAGE UNKNOWN
     Route: 048
     Dates: start: 20240523
  7. FRAGMIN [Concomitant]
     Active Substance: DALTEPARIN SODIUM
     Indication: Thrombosis prophylaxis
     Route: 058
     Dates: start: 20240521, end: 20240531
  8. DOXORUBICIN [Concomitant]
     Active Substance: DOXORUBICIN
     Indication: Triple negative breast cancer
     Dosage: TIME INTERVAL: CYCLICAL: CYCLICAL
     Route: 041
     Dates: start: 20240220, end: 20240426
  9. KEFZOL [Concomitant]
     Active Substance: CEFAZOLIN SODIUM
     Indication: Antibiotic prophylaxis
     Dosage: TIME INTERVAL: TOTAL: DOSAGE UNKNOWN ; IN TOTAL
     Route: 042
     Dates: start: 20240521, end: 20240521
  10. NEUPOGEN [Concomitant]
     Active Substance: FILGRASTIM
     Indication: Leukopenia
     Dosage: TIME INTERVAL: AS NECESSARY: LAST APPLICATION BEFORE ADVERSE EVENT ON 20240512 ; AS NECESSARY
     Route: 058
     Dates: start: 202311

REACTIONS (6)
  - Pyrexia [Recovered/Resolved]
  - Leukopenia [Recovered/Resolved]
  - Pruritus [Recovering/Resolving]
  - Rash macular [Recovering/Resolving]
  - Transaminases increased [Recovering/Resolving]
  - Lip swelling [Recovering/Resolving]

NARRATIVE: CASE EVENT DATE: 20240524
